FAERS Safety Report 5947379-7 (Version None)
Quarter: 2008Q4

REPORT INFORMATION
  Report Type: 
  Country: None (occurrence: None)
  Receive Date: 20081110
  Receipt Date: 20081103
  Transmission Date: 20090506
  Serious: Yes (Other)
  Sender: FDA-Public Use
  Company Number: DE-GILEAD-2008-0018890

PATIENT
  Sex: Male

DRUGS (1)
  1. VIREAD [Suspect]

REACTIONS (4)
  - DECREASED APPETITE [None]
  - GLYCOSURIA [None]
  - HYPOPHOSPHATAEMIA [None]
  - MICROALBUMINURIA [None]
